FAERS Safety Report 23558997 (Version 12)
Quarter: 2025Q3

REPORT INFORMATION
  Report Type: Report from Study
  Country: US (occurrence: US)
  Receive Date: 20240223
  Receipt Date: 20250923
  Transmission Date: 20251020
  Serious: Yes (Hospitalization, Other)
  Sender: TAKEDA
  Company Number: US-PAREXEL-2021-KAM-US003408

PATIENT
  Age: 48 Year
  Sex: Male
  Weight: 79 kg

DRUGS (42)
  1. GLASSIA [Suspect]
     Active Substance: .ALPHA.1-PROTEINASE INHIBITOR HUMAN
     Indication: Alpha-1 antitrypsin deficiency
     Dosage: UNK UNK, 1/WEEK
  2. GLASSIA [Suspect]
     Active Substance: .ALPHA.1-PROTEINASE INHIBITOR HUMAN
     Dosage: UNK UNK, 1/WEEK
  3. GLASSIA [Suspect]
     Active Substance: .ALPHA.1-PROTEINASE INHIBITOR HUMAN
     Dosage: UNK UNK, 1/WEEK
  4. GLASSIA [Suspect]
     Active Substance: .ALPHA.1-PROTEINASE INHIBITOR HUMAN
     Dosage: 60 MILLIGRAM/KILOGRAM, 1/WEEK
  5. GLASSIA [Suspect]
     Active Substance: .ALPHA.1-PROTEINASE INHIBITOR HUMAN
  6. EPINEPHRINE [Concomitant]
     Active Substance: EPINEPHRINE
  7. TIZANIDINE HYDROCHLORIDE [Concomitant]
     Active Substance: TIZANIDINE HYDROCHLORIDE
  8. LISINOPRIL [Concomitant]
     Active Substance: LISINOPRIL
  9. FOLIC ACID [Concomitant]
     Active Substance: FOLIC ACID
  10. ACETAMINOPHEN\HYDROCODONE [Concomitant]
     Active Substance: ACETAMINOPHEN\HYDROCODONE
  11. SODIUM CHLORIDE [Concomitant]
     Active Substance: SODIUM CHLORIDE
  12. VITAMIN B COMPLEX [Concomitant]
     Active Substance: CYANOCOBALAMIN\DEXPANTHENOL\NIACINAMIDE\PYRIDOXINE HYDROCHLORIDE\RIBOFLAVIN 5^-PHOSPHATE SODIUM\THIA
  13. GABAPENTIN [Concomitant]
     Active Substance: GABAPENTIN
  14. PROAIR HFA [Concomitant]
     Active Substance: ALBUTEROL SULFATE
  15. DIPHENHYDRAMINE HYDROCHLORIDE [Concomitant]
     Active Substance: DIPHENHYDRAMINE HYDROCHLORIDE
  16. CALCIUM\CHOLECALCIFEROL [Concomitant]
     Active Substance: CALCIUM\CHOLECALCIFEROL
  17. AMLODIPINE BESYLATE [Concomitant]
     Active Substance: AMLODIPINE BESYLATE
  18. ONDANSETRON HYDROCHLORIDE [Concomitant]
     Active Substance: ONDANSETRON HYDROCHLORIDE
  19. MOTRIN IB [Concomitant]
     Active Substance: IBUPROFEN
  20. DIPHENHYDRAMINE [Concomitant]
     Active Substance: DIPHENHYDRAMINE
  21. BUSPIRONE HCL [Concomitant]
     Active Substance: BUSPIRONE HYDROCHLORIDE
  22. ALPRAZOLAM [Concomitant]
     Active Substance: ALPRAZOLAM
  23. VITAMIN D3 [Concomitant]
     Active Substance: CHOLECALCIFEROL
  24. LIDOCAINE [Concomitant]
     Active Substance: LIDOCAINE
  25. FLUBLOK [Concomitant]
     Active Substance: INFLUENZA VIRUS VACCINE
  26. Lmx [Concomitant]
  27. NORCO [Concomitant]
     Active Substance: ACETAMINOPHEN\HYDROCODONE BITARTRATE
  28. AMOXICILLIN\CLAVULANATE POTASSIUM [Concomitant]
     Active Substance: AMOXICILLIN\CLAVULANATE POTASSIUM
  29. CEFUROXIME [Concomitant]
     Active Substance: CEFUROXIME
  30. MELOXICAM [Concomitant]
     Active Substance: MELOXICAM
  31. CELEBREX [Concomitant]
     Active Substance: CELECOXIB
  32. ROBITUSSIN (GUAIFENESIN) [Concomitant]
     Active Substance: GUAIFENESIN
  33. METHYLPREDNISOLONE [Concomitant]
     Active Substance: METHYLPREDNISOLONE
  34. AZITHROMYCIN [Concomitant]
     Active Substance: AZITHROMYCIN
  35. ELIQUIS [Concomitant]
     Active Substance: APIXABAN
  36. LEVOFLOXACIN [Concomitant]
     Active Substance: LEVOFLOXACIN
  37. LANTUS SOLOSTAR [Concomitant]
     Active Substance: INSULIN GLARGINE
  38. PERCOCET [Concomitant]
     Active Substance: ACETAMINOPHEN\OXYCODONE HYDROCHLORIDE
  39. NOVOLIN N [Concomitant]
     Active Substance: INSULIN HUMAN
  40. POTASSIUM [Concomitant]
     Active Substance: POTASSIUM
  41. FARXIGA [Concomitant]
     Active Substance: DAPAGLIFLOZIN PROPANEDIOL
  42. INSULIN LISPRO JUNIOR KWIKPEN [Concomitant]
     Active Substance: INSULIN LISPRO

REACTIONS (26)
  - Pulmonary thrombosis [Unknown]
  - Blood glucose increased [Unknown]
  - Pancreatic cyst [Unknown]
  - Pulmonary oedema [Unknown]
  - Cataract [Unknown]
  - Eye allergy [Unknown]
  - Respiratory tract infection [Unknown]
  - Joint swelling [Unknown]
  - Respiratory tract congestion [Unknown]
  - Tooth abscess [Unknown]
  - Infusion site haemorrhage [Unknown]
  - Tooth infection [Unknown]
  - Skin lesion [Recovering/Resolving]
  - Neck pain [Unknown]
  - Pancreatic disorder [Unknown]
  - Weight decreased [Unknown]
  - Decreased appetite [Unknown]
  - Dehydration [Unknown]
  - Muscle spasms [Unknown]
  - Poor venous access [Unknown]
  - Pulmonary mass [Unknown]
  - Product dose omission issue [Unknown]
  - Obstruction [Unknown]
  - Sick relative [Unknown]
  - Asthenia [Unknown]
  - Cough [Unknown]

NARRATIVE: CASE EVENT DATE: 20220216
